FAERS Safety Report 25658665 (Version 1)
Quarter: 2025Q3

REPORT INFORMATION
  Report Type: Spontaneous
  Country: EU (occurrence: EU)
  Receive Date: 20250808
  Receipt Date: 20250808
  Transmission Date: 20251021
  Serious: Yes (Death, Other)
  Sender: HIKMA
  Company Number: None

PATIENT
  Age: 69 Year
  Sex: Male
  Weight: 103.8 kg

DRUGS (1)
  1. METHYLPREDNISOLONE [Suspect]
     Active Substance: METHYLPREDNISOLONE
     Indication: Hypersensitivity pneumonitis
     Route: 042
     Dates: start: 20250623

REACTIONS (2)
  - Posterior reversible encephalopathy syndrome [Fatal]
  - Status epilepticus [Fatal]

NARRATIVE: CASE EVENT DATE: 20250630
